FAERS Safety Report 20660145 (Version 1)
Quarter: 2022Q1

REPORT INFORMATION
  Report Type: Spontaneous
  Country: AU (occurrence: AU)
  Receive Date: 20220331
  Receipt Date: 20220331
  Transmission Date: 20220423
  Serious: Yes (Other)
  Sender: FDA-Public Use
  Company Number: None

PATIENT
  Age: 66 Year
  Sex: Female

DRUGS (5)
  1. PANTOPRAZOLE [Suspect]
     Active Substance: PANTOPRAZOLE
     Dosage: 40 MILLIGRAM, QD
     Route: 065
  2. CLOZARIL [Suspect]
     Active Substance: CLOZAPINE
     Indication: Schizophrenia
     Dosage: 200 MILLIGRAM, QD
     Route: 048
     Dates: start: 20200807
  3. DOCUSATE SODIUM [Suspect]
     Active Substance: DOCUSATE SODIUM
     Dosage: UNK
  4. PROPRANOLOL [Suspect]
     Active Substance: PROPRANOLOL HYDROCHLORIDE
     Indication: Migraine
     Dosage: 40 MILLIGRAM, QD
  5. PSYLLIUM HUSK, UNSPECIFIED [Suspect]
     Active Substance: PSYLLIUM HUSK
     Dosage: UNK

REACTIONS (7)
  - Ejection fraction decreased [Recovering/Resolving]
  - Antipsychotic drug level decreased [Recovered/Resolved]
  - Blood glucose increased [Unknown]
  - Blood sodium decreased [Unknown]
  - Blood triglycerides increased [Unknown]
  - Salivary hypersecretion [Unknown]
  - Sedation [Unknown]

NARRATIVE: CASE EVENT DATE: 20201109
